FAERS Safety Report 9507024 (Version 1)
Quarter: 2013Q3

REPORT INFORMATION
  Report Type: Spontaneous
  Country: US (occurrence: None)
  Receive Date: 20130905
  Receipt Date: 20130905
  Transmission Date: 20140515
  Serious: Yes (Other)
  Sender: FDA-Public Use
  Company Number: None

PATIENT
  Age: 46 Year
  Sex: Male

DRUGS (3)
  1. TASIGNA [Suspect]
     Indication: CHRONIC MYELOID LEUKAEMIA
     Dosage: 200MG BID PO
     Route: 048
     Dates: start: 20130718, end: 20130904
  2. ALLOPURINOL [Concomitant]
  3. HYDROCODONE [Concomitant]

REACTIONS (7)
  - Anxiety [None]
  - Dyspnoea [None]
  - Dizziness [None]
  - Agitation [None]
  - Visual impairment [None]
  - Pain in extremity [None]
  - Chest pain [None]
